FAERS Safety Report 7131292-6 (Version None)
Quarter: 2010Q4

REPORT INFORMATION
  Report Type: 
  Country: None (occurrence: None)
  Receive Date: 20101201
  Receipt Date: 20101019
  Transmission Date: 20110411
  Serious: Yes (Death, Other)
  Sender: FDA-Public Use
  Company Number: US-BAXTER-2010BH000146

PATIENT
  Age: 50 Year
  Sex: Male
  Weight: 140 kg

DRUGS (48)
  1. HEPARIN SODIUM INJECTION [Suspect]
     Indication: CATHETERISATION CARDIAC
     Route: 042
     Dates: start: 20071227, end: 20071227
  2. HEPARIN SODIUM INJECTION [Suspect]
     Indication: STENT PLACEMENT
     Route: 042
     Dates: start: 20071227, end: 20071227
  3. HEPARIN SODIUM INJECTION [Suspect]
     Route: 042
     Dates: start: 20071227, end: 20080103
  4. HEPARIN SODIUM INJECTION [Suspect]
     Route: 042
     Dates: start: 20071227, end: 20080103
  5. HEPARIN SODIUM INJECTION [Suspect]
     Route: 042
     Dates: start: 20071227, end: 20071227
  6. HEPARIN SODIUM INJECTION [Suspect]
     Route: 042
     Dates: start: 20071227, end: 20071227
  7. HEPARIN SODIUM INJECTION [Suspect]
     Route: 042
     Dates: start: 20071227, end: 20071227
  8. HEPARIN SODIUM INJECTION [Suspect]
     Route: 042
     Dates: start: 20071227, end: 20071227
  9. HEPARIN SODIUM INJECTION [Suspect]
     Route: 042
     Dates: start: 20071227, end: 20080103
  10. HEPARIN SODIUM INJECTION [Suspect]
     Route: 042
     Dates: start: 20071227, end: 20080103
  11. HEPARIN SODIUM INJECTION [Suspect]
     Route: 042
     Dates: start: 20071227, end: 20080103
  12. HEPARIN SODIUM INJECTION [Suspect]
     Route: 042
     Dates: start: 20071227, end: 20080103
  13. HEPARIN SODIUM INJECTION [Suspect]
     Route: 042
     Dates: start: 20071227, end: 20080103
  14. HEPARIN SODIUM INJECTION [Suspect]
     Route: 042
     Dates: start: 20071227, end: 20080103
  15. HEPARIN SODIUM INJECTION [Suspect]
     Route: 042
     Dates: start: 20071227, end: 20080103
  16. HEPARIN SODIUM INJECTION [Suspect]
     Route: 042
     Dates: start: 20071227, end: 20080103
  17. HEPARIN SODIUM INJECTION [Suspect]
     Route: 042
     Dates: start: 20071227, end: 20080103
  18. HEPARIN SODIUM INJECTION [Suspect]
     Route: 042
     Dates: start: 20071227, end: 20080103
  19. HEPARIN SODIUM 5,000 UNITS IN DEXTROSE 5% [Suspect]
     Indication: CATHETERISATION CARDIAC
     Route: 042
     Dates: start: 20071228, end: 20080103
  20. HEPARIN SODIUM 5,000 UNITS IN DEXTROSE 5% [Suspect]
     Indication: STENT PLACEMENT
     Route: 042
     Dates: start: 20071228, end: 20080103
  21. INSULIN [Concomitant]
     Indication: PRODUCT USED FOR UNKNOWN INDICATION
     Route: 065
  22. LISINOPRIL [Concomitant]
     Indication: PRODUCT USED FOR UNKNOWN INDICATION
     Route: 065
  23. VICODIN [Concomitant]
     Indication: PRODUCT USED FOR UNKNOWN INDICATION
     Route: 065
  24. ASPIRIN [Concomitant]
     Indication: PRODUCT USED FOR UNKNOWN INDICATION
     Route: 065
  25. ESOMEPRAZOLE [Concomitant]
     Indication: PRODUCT USED FOR UNKNOWN INDICATION
     Route: 065
  26. FAMOTIDINE [Concomitant]
     Indication: PRODUCT USED FOR UNKNOWN INDICATION
     Route: 065
  27. FUROSEMIDE [Concomitant]
     Indication: PRODUCT USED FOR UNKNOWN INDICATION
     Route: 065
  28. LEVOFLOXACIN [Concomitant]
     Indication: PRODUCT USED FOR UNKNOWN INDICATION
     Route: 065
  29. MAGNESIUM SULFATE [Concomitant]
     Indication: PRODUCT USED FOR UNKNOWN INDICATION
     Route: 065
  30. METOPROLOL [Concomitant]
     Indication: PRODUCT USED FOR UNKNOWN INDICATION
     Route: 065
  31. POTASSIUM CHLORIDE [Concomitant]
     Indication: PRODUCT USED FOR UNKNOWN INDICATION
     Route: 065
  32. ROSUVASTATIN [Concomitant]
     Indication: PRODUCT USED FOR UNKNOWN INDICATION
     Route: 065
  33. SODIUM CHLORIDE [Concomitant]
     Indication: PRODUCT USED FOR UNKNOWN INDICATION
     Route: 065
  34. VANCOMYCIN [Concomitant]
     Indication: PRODUCT USED FOR UNKNOWN INDICATION
     Route: 065
  35. ACETAMINOPHEN [Concomitant]
     Indication: PRODUCT USED FOR UNKNOWN INDICATION
     Route: 065
  36. CAPTOPRIL [Concomitant]
     Indication: PRODUCT USED FOR UNKNOWN INDICATION
     Route: 065
  37. CLOPIDOGREL [Concomitant]
     Indication: PRODUCT USED FOR UNKNOWN INDICATION
     Route: 065
  38. INSULIN [Concomitant]
     Route: 042
  39. DOBUTAMINE [Concomitant]
     Indication: PRODUCT USED FOR UNKNOWN INDICATION
     Route: 042
  40. 5% DEXTROSE INJECTION [Concomitant]
     Indication: PRODUCT USED FOR UNKNOWN INDICATION
     Route: 042
  41. DOPAMINE [Concomitant]
     Indication: PRODUCT USED FOR UNKNOWN INDICATION
     Route: 042
  42. NOREPINEPHRINE [Concomitant]
     Indication: PRODUCT USED FOR UNKNOWN INDICATION
     Route: 042
  43. PROPOFOL [Concomitant]
     Indication: PRODUCT USED FOR UNKNOWN INDICATION
     Route: 042
  44. PHENYLEPHRINE HCL [Concomitant]
     Indication: PRODUCT USED FOR UNKNOWN INDICATION
     Route: 042
  45. ALBUTEROL SULFATE [Concomitant]
     Indication: PRODUCT USED FOR UNKNOWN INDICATION
     Route: 055
  46. IPRATROPIUM BROMIDE [Concomitant]
     Indication: PRODUCT USED FOR UNKNOWN INDICATION
     Route: 055
  47. PRIMAXIN [Concomitant]
     Indication: PRODUCT USED FOR UNKNOWN INDICATION
     Route: 042
  48. VANCOMYCIN [Concomitant]
     Route: 065

REACTIONS (27)
  - ACUTE LEFT VENTRICULAR FAILURE [None]
  - ACUTE MYOCARDIAL INFARCTION [None]
  - ANAEMIA [None]
  - AZOTAEMIA [None]
  - CARDIAC ARREST [None]
  - CARDIAC FAILURE ACUTE [None]
  - CARDIOGENIC SHOCK [None]
  - CEREBRAL CIRCULATORY FAILURE [None]
  - COAGULOPATHY [None]
  - ELECTROMECHANICAL DISSOCIATION [None]
  - ENCEPHALOPATHY [None]
  - EPISTAXIS [None]
  - HEPARIN-INDUCED THROMBOCYTOPENIA [None]
  - HYPOTENSION [None]
  - HYPOXIA [None]
  - LEUKOCYTOSIS [None]
  - METABOLIC ACIDOSIS [None]
  - MOUTH HAEMORRHAGE [None]
  - PULMONARY OEDEMA [None]
  - PUPIL FIXED [None]
  - PYREXIA [None]
  - RENAL FAILURE ACUTE [None]
  - RESPIRATORY ACIDOSIS [None]
  - RESPIRATORY FAILURE [None]
  - SEPSIS [None]
  - TACHYCARDIA [None]
  - UNRESPONSIVE TO STIMULI [None]
